FAERS Safety Report 4798312-5 (Version None)
Quarter: 2005Q4

REPORT INFORMATION
  Report Type: 
  Country: None (occurrence: None)
  Receive Date: 20051011
  Receipt Date: 20050930
  Transmission Date: 20060501
  Serious: Yes (Hospitalization)
  Sender: FDA-Public Use
  Company Number: 2005-10-0027

PATIENT

DRUGS (7)
  1. INTRON A [Suspect]
     Indication: METASTATIC RENAL CELL CARCINOMA
     Dosage: SUBCUTANEOUS
     Route: 058
     Dates: end: 20050901
  2. ............ [Concomitant]
  3. PROLEUKIN [Suspect]
     Indication: METASTATIC RENAL CELL CARCINOMA
     Dosage: SUBCUTANEOUS
     Route: 058
     Dates: end: 20050901
  4. ...... [Concomitant]
  5. 5-FU INJECTABLE [Suspect]
     Indication: METASTATIC RENAL CELL CARCINOMA
     Dosage: INTRAVENOUS
     Route: 042
     Dates: end: 20050901
  6. ...................... [Suspect]
     Indication: METASTATIC RENAL CELL CARCINOMA
     Route: 042
     Dates: end: 20050901
  7. ATENOLOL [Concomitant]

REACTIONS (3)
  - ATRIOVENTRICULAR BLOCK [None]
  - BRADYCARDIA [None]
  - LOSS OF CONSCIOUSNESS [None]
